FAERS Safety Report 8194152 (Version 12)
Quarter: 2014Q3

REPORT INFORMATION
  Report Type: Report from Study
  Country: PL (occurrence: PL)
  Receive Date: 20111021
  Receipt Date: 20140808
  Transmission Date: 20150326
  Serious: Yes (Hospitalization)
  Sender: FDA-Public Use
  Company Number: PL-ROCHE-1003885

PATIENT
  Age: 53 Year
  Sex: Male
  Weight: 115 kg

DRUGS (29)
  1. AMIKIN [Concomitant]
     Active Substance: AMIKACIN SULFATE
     Indication: PYREXIA
     Route: 065
     Dates: start: 20110911, end: 20110912
  2. METFORMIN HYDROCHLORIDE. [Concomitant]
     Active Substance: METFORMIN HYDROCHLORIDE
     Route: 065
     Dates: start: 20110923, end: 20111004
  3. MAXIPIME [Concomitant]
     Active Substance: CEFEPIME HYDROCHLORIDE
     Indication: PYREXIA
     Route: 065
     Dates: start: 20110912, end: 20110920
  4. ECALTA [Concomitant]
     Active Substance: ANIDULAFUNGIN
     Route: 065
     Dates: start: 20110913, end: 20110922
  5. BLOOD [Concomitant]
     Active Substance: WHOLE BLOOD
     Indication: ANAEMIA
     Route: 065
     Dates: start: 20110916, end: 20110916
  6. PRAVATOR [Concomitant]
     Route: 065
     Dates: start: 20111213, end: 20120201
  7. DALTEPARIN [Concomitant]
     Active Substance: DALTEPARIN
     Route: 065
     Dates: start: 20111213, end: 20120201
  8. RITUXIMAB [Suspect]
     Active Substance: RITUXIMAB
     Indication: CHRONIC LYMPHOCYTIC LEUKAEMIA
     Dosage: LAST DOSE PRIOR TO SAE: 30 AUG 2011
     Route: 042
     Dates: start: 20110705
  9. PYRALGINUM [Concomitant]
     Indication: PYREXIA
     Route: 065
     Dates: start: 20110908, end: 20110914
  10. AUGMENTIN [Concomitant]
     Active Substance: AMOXICILLIN\CLAVULANATE POTASSIUM
     Indication: PYREXIA
     Route: 065
     Dates: start: 20110905, end: 20110907
  11. SULFAMETHOXAZOLE [Concomitant]
     Active Substance: SULFAMETHOXAZOLE
     Route: 065
     Dates: start: 20110705, end: 20110909
  12. ALBUMIN 20% [Concomitant]
     Indication: HEPATOTOXICITY
     Route: 065
     Dates: start: 20110916, end: 20110920
  13. TRIOXAL [Concomitant]
     Route: 065
     Dates: start: 20110923
  14. ACETYLCYSTEINUM [Concomitant]
     Indication: PYREXIA
     Route: 065
     Dates: start: 20110905, end: 20110907
  15. POLOCARD [Concomitant]
     Active Substance: ASPIRIN
     Route: 065
     Dates: start: 20111213
  16. HEPATIL [Concomitant]
     Indication: HEPATOTOXICITY
     Route: 065
     Dates: start: 20110923, end: 20111006
  17. SULFACETAMIDUM [Concomitant]
     Indication: DIPLOPIA
     Route: 065
     Dates: start: 20111003, end: 20111006
  18. HYDROCORTISONUM [Concomitant]
     Route: 065
     Dates: start: 20110913, end: 20110921
  19. METFORMIN HYDROCHLORIDE. [Concomitant]
     Active Substance: METFORMIN HYDROCHLORIDE
     Indication: DIABETES MELLITUS
     Route: 065
     Dates: start: 2007
  20. ACICLOVIR [Concomitant]
     Active Substance: ACYCLOVIR
     Route: 065
     Dates: start: 20111003, end: 20111213
  21. SPORANOX [Concomitant]
     Active Substance: ITRACONAZOLE\SODIUM CHLORIDE
     Route: 065
     Dates: start: 20111003, end: 20111006
  22. CALCIUM CHLORIDE. [Concomitant]
     Active Substance: CALCIUM CHLORIDE
     Route: 065
     Dates: start: 20110913, end: 20110922
  23. ATORVASTATIN [Concomitant]
     Active Substance: ATORVASTATIN
     Indication: DIABETES MELLITUS
     Route: 065
     Dates: start: 2007, end: 20111213
  24. HEPAMERZ [Concomitant]
     Active Substance: ORNITHINE ASPARTATE
     Indication: HEPATOTOXICITY
     Route: 065
     Dates: start: 20110913, end: 20110922
  25. TAZOCIN [Concomitant]
     Active Substance: PIPERACILLIN SODIUM\TAZOBACTAM SODIUM
     Indication: PYREXIA
     Route: 065
     Dates: start: 20110907, end: 20110912
  26. LYRICA [Concomitant]
     Active Substance: PREGABALIN
     Route: 065
     Dates: start: 20111213, end: 20120201
  27. ZOLOFT [Concomitant]
     Active Substance: SERTRALINE HYDROCHLORIDE
     Route: 065
     Dates: start: 20111213
  28. ACICLOVIR [Concomitant]
     Active Substance: ACYCLOVIR
     Route: 065
     Dates: start: 20110705, end: 20110912
  29. ACTRAPID [Concomitant]
     Active Substance: INSULIN HUMAN
     Indication: DIABETES MELLITUS
     Route: 065
     Dates: start: 20110913, end: 20110922

REACTIONS (1)
  - Guillain-Barre syndrome [Recovered/Resolved]

NARRATIVE: CASE EVENT DATE: 20111006
